FAERS Safety Report 14579037 (Version 1)
Quarter: 2018Q1

REPORT INFORMATION
  Report Type: Spontaneous
  Country: ES (occurrence: ES)
  Receive Date: 20180227
  Receipt Date: 20180227
  Transmission Date: 20180509
  Serious: Yes (Hospitalization)
  Sender: FDA-Public Use
  Company Number: ES-BAUSCH-BL-2018-005109

PATIENT
  Age: 82 Year
  Sex: Male
  Weight: 73.3 kg

DRUGS (11)
  1. XOTERNA BREEZHALER 85MCG/43MCG POLVO PARA INHALACION (CAPSULA DURA) [Concomitant]
     Indication: PRODUCT USED FOR UNKNOWN INDICATION
     Dosage: 85 MCG/43 MCG POWDER FOR INHALATION (HARD CAPSULE)
     Route: 055
  2. DICLOFENACO (745A) [Suspect]
     Active Substance: DICLOFENAC
     Indication: PRODUCT USED FOR UNKNOWN INDICATION
     Route: 048
  3. ZOLADEX TRIMESTRAL 10.8 MG IMPLANTE EN JERINGA PRECARGADA, 1 IMPLANTE [Concomitant]
     Indication: PRODUCT USED FOR UNKNOWN INDICATION
     Dosage: QUARTERLY 10.8 MG PRELOAD SYRINGE IMPLANT, 1 IMPLANT
     Route: 058
  4. VALSARTAN PLUS HIDROCLOROTIAZIDA [Concomitant]
     Indication: PRODUCT USED FOR UNKNOWN INDICATION
     Route: 048
  5. LORMETAZEPAM (88A) [Concomitant]
     Indication: PRODUCT USED FOR UNKNOWN INDICATION
     Route: 048
  6. PARIET 20 MG COMPRIMIDOS GASTRORRESISTENTES, 28 COMPRIMIDOS [Concomitant]
     Indication: PRODUCT USED FOR UNKNOWN INDICATION
     Dosage: GASTRO-RESISTANT COMPRESSES
     Route: 048
  7. NOLOTIL 575 MG CAPSULAS DURAS, 20 CAPSULAS [Concomitant]
     Indication: PRODUCT USED FOR UNKNOWN INDICATION
     Dosage: AS NECESSARY; 20 CAPSULES
     Route: 048
  8. ARTEDIL 20 MG COMPRIMIDOS, 28 COMPRIMIDOS [Concomitant]
     Indication: PRODUCT USED FOR UNKNOWN INDICATION
     Route: 048
  9. XARELTO [Suspect]
     Active Substance: RIVAROXABAN
     Indication: PRODUCT USED FOR UNKNOWN INDICATION
     Route: 048
     Dates: start: 2018, end: 20180131
  10. PARACETAMOL (12A) [Concomitant]
     Active Substance: ACETAMINOPHEN
     Indication: PRODUCT USED FOR UNKNOWN INDICATION
     Dosage: AS NECESSARY
     Route: 048
  11. SIMVASTATINA (1023A) [Concomitant]
     Active Substance: SIMVASTATIN
     Indication: PRODUCT USED FOR UNKNOWN INDICATION
     Route: 048

REACTIONS (1)
  - Melaena [Recovering/Resolving]

NARRATIVE: CASE EVENT DATE: 20180125
